FAERS Safety Report 15010328 (Version 1)
Quarter: 2018Q2

REPORT INFORMATION
  Report Type: Spontaneous
  Country: US (occurrence: US)
  Receive Date: 20180522
  Receipt Date: 20180522
  Transmission Date: 20180711
  Serious: Yes (Hospitalization)
  Sender: FDA-Public Use
  Company Number: None

PATIENT
  Age: 59 Year
  Sex: Female

DRUGS (1)
  1. STELARA [Suspect]
     Active Substance: USTEKINUMAB
     Dosage: 45MG/0.5ML ONCE EVERY 90 DAYS; SUBC?
     Route: 058
     Dates: end: 201801

REACTIONS (1)
  - Meningitis [None]

NARRATIVE: CASE EVENT DATE: 201801
